FAERS Safety Report 13189005 (Version 1)
Quarter: 2017Q1

REPORT INFORMATION
  Report Type: Spontaneous
  Country: US (occurrence: US)
  Receive Date: 20170203
  Receipt Date: 20170203
  Transmission Date: 20170428
  Serious: Yes (Disabling)
  Sender: FDA-Public Use
  Company Number: None

PATIENT
  Age: 44 Year
  Sex: Female
  Weight: 57.15 kg

DRUGS (7)
  1. GABAPENTIN. [Concomitant]
     Active Substance: GABAPENTIN
  2. CALCIUM CITRATE [Concomitant]
     Active Substance: CALCIUM CITRATE
  3. PRENISOLONE PHOSPHATE [Concomitant]
  4. TAZORAC [Suspect]
     Active Substance: TAZAROTENE
     Indication: MILIA
     Route: 061
     Dates: start: 20130401, end: 20140930
  5. THERATEARS NUTRITION [Concomitant]
  6. RETIN-A [Suspect]
     Active Substance: TRETINOIN
     Indication: MILIA
     Route: 061
     Dates: start: 20150726, end: 20150829
  7. PILOCARPINE. [Concomitant]
     Active Substance: PILOCARPINE

REACTIONS (12)
  - Carpal tunnel syndrome [None]
  - Nail disorder [None]
  - Neuropathy peripheral [None]
  - Arthralgia [None]
  - Back pain [None]
  - Dry eye [None]
  - Dry mouth [None]
  - Corneal disorder [None]
  - Bone density decreased [None]
  - Blepharitis [None]
  - Atrophy [None]
  - Conjunctivitis [None]

NARRATIVE: CASE EVENT DATE: 20150901
